FAERS Safety Report 7058096-7 (Version None)
Quarter: 2010Q4

REPORT INFORMATION
  Report Type: 
  Country: None (occurrence: None)
  Receive Date: 20101022
  Receipt Date: 20101018
  Transmission Date: 20110411
  Serious: Yes (Other)
  Sender: FDA-Public Use
  Company Number: US-GILEAD-2010-0032679

PATIENT
  Age: 78 Year
  Sex: Male
  Weight: 90.8 kg

DRUGS (25)
  1. LETAIRIS [Suspect]
     Indication: PULMONARY ARTERIAL HYPERTENSION
     Route: 048
     Dates: start: 20100623
  2. ASPIRIN [Concomitant]
  3. PLAVIX [Concomitant]
  4. LASIX [Concomitant]
  5. METOPROLOL [Concomitant]
  6. LOVASTATIN [Concomitant]
  7. PROVENTIL-HFA [Concomitant]
  8. DILAUDID [Concomitant]
  9. DETROL [Concomitant]
  10. SYNTHROID [Concomitant]
  11. XANAX [Concomitant]
  12. FOLIC ACID [Concomitant]
  13. NEURONTIN [Concomitant]
  14. FISH OIL [Concomitant]
  15. RAZADYNE ER [Concomitant]
  16. CYANOCOBALAMIN [Concomitant]
  17. CALCIUM WITH VITAMIN D [Concomitant]
  18. ASCORBIC ACID [Concomitant]
  19. SYMBICORT [Concomitant]
  20. NEXIUM [Concomitant]
  21. POTASSIUM CHLORIDE [Concomitant]
  22. MULTI-VITAMINS [Concomitant]
  23. CELEXA [Concomitant]
  24. FLOMAX [Concomitant]
  25. SENNA DOCUSATE [Concomitant]

REACTIONS (1)
  - CATHETERISATION CARDIAC [None]
